FAERS Safety Report 13429350 (Version 2)
Quarter: 2017Q2

REPORT INFORMATION
  Report Type: Spontaneous
  Country: CH (occurrence: CH)
  Receive Date: 20170411
  Receipt Date: 20170518
  Transmission Date: 20170830
  Serious: Yes (Hospitalization, Other)
  Sender: FDA-Public Use
  Company Number: CH-GILEAD-2017-0265501

PATIENT
  Sex: Male

DRUGS (1)
  1. HARVONI [Suspect]
     Active Substance: LEDIPASVIR\SOFOSBUVIR
     Indication: CHRONIC HEPATITIS C
     Route: 065

REACTIONS (8)
  - Tachycardia [Unknown]
  - Toxicity to various agents [Unknown]
  - Hypotonic-hyporesponsive episode [Unknown]
  - Staphylococcal bacteraemia [Unknown]
  - Dysphagia [Unknown]
  - Pyrexia [Unknown]
  - Coma scale abnormal [Unknown]
  - Drug dose omission [Unknown]
